FAERS Safety Report 7357168-7 (Version None)
Quarter: 2011Q1

REPORT INFORMATION
  Report Type: 
  Country: None (occurrence: None)
  Receive Date: 20110317
  Receipt Date: 20110311
  Transmission Date: 20110831
  Serious: Yes (Other)
  Sender: FDA-Public Use
  Company Number: US-PFIZER INC-2007036541

PATIENT

DRUGS (2)
  1. NEURONTIN [Suspect]
     Indication: BACK PAIN
     Dosage: 300 MG, UNK
     Dates: start: 20020131
  2. NEURONTIN [Suspect]
     Indication: NERVE INJURY

REACTIONS (4)
  - NAUSEA [None]
  - SUICIDAL IDEATION [None]
  - THINKING ABNORMAL [None]
  - SOMNOLENCE [None]
